FAERS Safety Report 6656197-6 (Version None)
Quarter: 2010Q1

REPORT INFORMATION
  Report Type: 
  Country: None (occurrence: None)
  Receive Date: 20100326
  Receipt Date: 20100326
  Transmission Date: 20100710
  Serious: Yes (Disabling, Other)
  Sender: FDA-Public Use
  Company Number: None

PATIENT
  Age: 38 Year
  Sex: Female
  Weight: 116.5744 kg

DRUGS (1)
  1. LEVAQUIN [Suspect]
     Indication: PROPHYLAXIS
     Dosage: 1X DAILY PO
     Route: 048
     Dates: start: 20100317, end: 20100321

REACTIONS (9)
  - ANXIETY [None]
  - CRYING [None]
  - DISCOMFORT [None]
  - DYSPNOEA [None]
  - IMPAIRED WORK ABILITY [None]
  - MUSCLE SPASMS [None]
  - NIGHTMARE [None]
  - TENDONITIS [None]
  - TIC [None]
